FAERS Safety Report 9960332 (Version 1)
Quarter: 2014Q1

REPORT INFORMATION
  Report Type: Spontaneous
  Country: GB (occurrence: GB)
  Receive Date: 20140305
  Receipt Date: 20140305
  Transmission Date: 20141002
  Serious: Yes (Other)
  Sender: FDA-Public Use
  Company Number: GB-SHIRE-GB201400176

PATIENT
  Sex: 0

DRUGS (2)
  1. ELVANSE [Suspect]
     Indication: ATTENTION DEFICIT/HYPERACTIVITY DISORDER
     Dosage: 30 MG, UNKNOWN, FOR APPROX 2 WEEKS
     Route: 048
  2. ELVANSE [Suspect]
     Dosage: 50 MG, UNKNOWN
     Route: 048

REACTIONS (2)
  - Weight decreased [Recovering/Resolving]
  - General symptom [Unknown]
